FAERS Safety Report 6692678-7 (Version None)
Quarter: 2010Q2

REPORT INFORMATION
  Report Type: 
  Country: None (occurrence: None)
  Receive Date: 20100422
  Receipt Date: 20100420
  Transmission Date: 20101027
  Serious: Yes (Death, Other)
  Sender: FDA-Public Use
  Company Number: BR-BRISTOL-MYERS SQUIBB COMPANY-14863534

PATIENT
  Age: 18 Year
  Sex: Male

DRUGS (9)
  1. SPRYCEL [Suspect]
     Indication: ACUTE LYMPHOCYTIC LEUKAEMIA
     Dosage: INTERRUPTED ON 07NOV09 (ABOUT 10 DAYS)
     Route: 048
     Dates: start: 20091026, end: 20091107
  2. CEFEPIME [Concomitant]
     Dosage: 2G 12/12HR
     Dates: start: 20091014, end: 20091101
  3. MEROPENEM [Concomitant]
     Dates: start: 20091102, end: 20091114
  4. FLUCONAZOLE [Concomitant]
     Dates: start: 20091102, end: 20091114
  5. MORPHINE [Concomitant]
     Dates: start: 20091014, end: 20091114
  6. BACTRIM [Concomitant]
     Dates: start: 20091014, end: 20091114
  7. PREDNISONE [Concomitant]
     Dates: start: 20091016, end: 20091114
  8. FILGRASTIM [Concomitant]
     Dates: start: 20091102, end: 20091114
  9. VINCRISTINE SULFATE [Concomitant]
     Dates: start: 20091027

REACTIONS (3)
  - FEBRILE NEUTROPENIA [None]
  - GASTROINTESTINAL HAEMORRHAGE [None]
  - PANCYTOPENIA [None]
